FAERS Safety Report 5573980-9 (Version None)
Quarter: 2007Q4

REPORT INFORMATION
  Report Type: 
  Country: None (occurrence: None)
  Receive Date: 20071212
  Receipt Date: 20071128
  Transmission Date: 20080405
  Serious: Yes (Disabling)
  Sender: FDA-Public Use
  Company Number: CART-10502

PATIENT
  Age: 35 Year
  Sex: Male
  Weight: 101.1521 kg

DRUGS (1)
  1. CARTIOEL. MFR: GENZYME BIOSURGERY [Suspect]
     Indication: JOINT INJURY
     Dosage: 1 ONCE IS
     Dates: start: 20060807, end: 20060807

REACTIONS (4)
  - CHONDROPATHY [None]
  - SYNOVITIS [None]
  - TENDONITIS [None]
  - TREATMENT FAILURE [None]
